FAERS Safety Report 23433175 (Version 1)
Quarter: 2024Q1

REPORT INFORMATION
  Report Type: Spontaneous
  Country: KW (occurrence: None)
  Receive Date: 20240123
  Receipt Date: 20240123
  Transmission Date: 20240410
  Serious: Yes (Life-Threatening, Hospitalization, Disabling)
  Sender: FDA-Public Use
  Company Number: None

PATIENT
  Age: 34 Year
  Sex: Female
  Weight: 65 kg

DRUGS (3)
  1. DIENOGEST [Suspect]
     Active Substance: DIENOGEST
     Dates: start: 20230214, end: 20230620
  2. ASACOL [Concomitant]
     Active Substance: MESALAMINE
  3. ZALDIAR [Concomitant]
     Active Substance: ACETAMINOPHEN\TRAMADOL HYDROCHLORIDE

REACTIONS (4)
  - Rash [None]
  - Rash papular [None]
  - Abdominal pain [None]
  - Adnexal torsion [None]

NARRATIVE: CASE EVENT DATE: 20230620
